FAERS Safety Report 7294322-7 (Version None)
Quarter: 2011Q1

REPORT INFORMATION
  Report Type: 
  Country: None (occurrence: None)
  Receive Date: 20110215
  Receipt Date: 20110207
  Transmission Date: 20110831
  Serious: Yes (Other)
  Sender: FDA-Public Use
  Company Number: US-US-EMD SERONO, INC.-7024389

PATIENT
  Sex: Female

DRUGS (4)
  1. REBIF [Suspect]
     Indication: MULTIPLE SCLEROSIS
     Route: 058
     Dates: start: 20071115
  2. BACLOFEN [Concomitant]
     Indication: MULTIPLE SCLEROSIS
  3. LOTREL [Concomitant]
     Indication: HYPERTENSION
  4. TEMAZEPAM [Concomitant]

REACTIONS (7)
  - HAEMORRHOIDS [None]
  - FATIGUE [None]
  - PANCREATIC CYST [None]
  - HOT FLUSH [None]
  - PARAESTHESIA [None]
  - COLONIC POLYP [None]
  - IRRITABLE BOWEL SYNDROME [None]
